FAERS Safety Report 7993535-6 (Version None)
Quarter: 2011Q4

REPORT INFORMATION
  Report Type: 
  Country: None (occurrence: None)
  Receive Date: 20111219
  Receipt Date: 20111206
  Transmission Date: 20120403
  Serious: Yes (Hospitalization, Other)
  Sender: FDA-Public Use
  Company Number: US-RB-034264-11

PATIENT
  Age: 35 Year
  Sex: Female

DRUGS (7)
  1. SUBOXONE [Suspect]
     Indication: DRUG DEPENDENCE
     Dosage: VARIED DOSING
     Route: 060
     Dates: start: 20110101, end: 20110101
  2. SUBOXONE [Suspect]
     Indication: DRUG DEPENDENCE
     Dosage: VARIED DOSES OF 8 TO 32 MG DAILY
     Route: 060
     Dates: start: 20101201, end: 20110327
  3. SUBOXONE [Suspect]
     Dosage: UNKNOWN DOSING INFORMATION
     Route: 065
     Dates: start: 20100101, end: 20110101
  4. TOPAMAX [Concomitant]
     Indication: MIGRAINE
     Dosage: DOSE UNKNOWN, START DATE PRIOR TO PREGNANCY
     Route: 065
     Dates: end: 20110901
  5. KLONOPIN [Concomitant]
     Indication: ANXIETY
     Dosage: UNKNOWN DOSE, START DATE PRIOR TO PREGNANCY
     Route: 065
  6. VICODIN [Concomitant]
     Indication: PRODUCT USED FOR UNKNOWN INDICATION
     Dosage: DOSE UNKNOWN
     Route: 065
  7. SUBOXONE [Suspect]
     Indication: PAIN
     Dosage: VARIED DOSING 8-32 MG AS NEEDED
     Route: 060
     Dates: start: 20110101

REACTIONS (8)
  - UNDERDOSE [None]
  - PAIN [None]
  - DRUG DEPENDENCE [None]
  - HAEMORRHOIDS [None]
  - ABDOMINAL PAIN [None]
  - TREATMENT NONCOMPLIANCE [None]
  - MATERNAL EXPOSURE DURING PREGNANCY [None]
  - GALLBLADDER DISORDER [None]
